FAERS Safety Report 4376454-6 (Version None)
Quarter: 2004Q2

REPORT INFORMATION
  Report Type: 
  Country: None (occurrence: None)
  Receive Date: 20040610
  Receipt Date: 20040526
  Transmission Date: 20050107
  Serious: Yes (Death)
  Sender: FDA-Public Use
  Company Number: 2004S1001563

PATIENT
  Age: 45 Year
  Sex: Male

DRUGS (9)
  1. CLOZAPINE [Suspect]
     Indication: SCHIZOPHRENIA
     Dosage: THEN 200MG Q AM AND 300MG Q PM, ORA
     Route: 048
     Dates: start: 20010801, end: 20040514
  2. FENTANYL [Concomitant]
  3. CODEINE SULFATE [Concomitant]
  4. DOCUSATE [Concomitant]
  5. LANSOPRAZOLE [Concomitant]
  6. BUSPIRONE [Concomitant]
  7. ZIPRASIDONE [Concomitant]
  8. LACTULOSE [Concomitant]
  9. ALUMINUM HYDROXIDE/MAGNESIUM HYDROXIDE [Concomitant]

REACTIONS (1)
  - PANCREATIC CARCINOMA [None]
